FAERS Safety Report 21790341 (Version 2)
Quarter: 2023Q1

REPORT INFORMATION
  Report Type: Report from Study
  Country: JP (occurrence: JP)
  Receive Date: 20221228
  Receipt Date: 20230315
  Transmission Date: 20230418
  Serious: Yes (Other)
  Sender: FDA-Public Use
  Company Number: JP-002147023-NVSC2022JP299638

PATIENT

DRUGS (2)
  1. LUTATHERA [Suspect]
     Active Substance: LUTETIUM OXODOTREOTIDE LU-177
     Dosage: UNK
     Route: 042
     Dates: start: 202203, end: 202210
  2. ARGININE\LYSINE [Suspect]
     Active Substance: ARGININE\LYSINE
     Dosage: UNK
     Route: 042
     Dates: start: 202203

REACTIONS (1)
  - Anaemia [Not Recovered/Not Resolved]

NARRATIVE: CASE EVENT DATE: 20221201
